FAERS Safety Report 12791700 (Version 1)
Quarter: 2016Q3

REPORT INFORMATION
  Report Type: Spontaneous
  Country: GB (occurrence: GB)
  Receive Date: 20160929
  Receipt Date: 20160929
  Transmission Date: 20161109
  Serious: Yes (Hospitalization)
  Sender: FDA-Public Use
  Company Number: GB-TEVA-694970ACC

PATIENT
  Age: 84 Year

DRUGS (6)
  1. OMEPRAZOLE. [Suspect]
     Active Substance: OMEPRAZOLE
     Dosage: 20 MILLIGRAM DAILY;
     Route: 048
     Dates: end: 20160907
  2. FOSTAIR [Concomitant]
     Active Substance: BECLOMETHASONE\FORMOTEROL
  3. ASPIRIN. [Concomitant]
     Active Substance: ASPIRIN
  4. PREDNISOLONE. [Concomitant]
     Active Substance: PREDNISOLONE
  5. ATORVASTATIN [Concomitant]
     Active Substance: ATORVASTATIN
  6. TIOTROPIUM [Concomitant]
     Active Substance: TIOTROPIUM

REACTIONS (1)
  - Acute kidney injury [Recovering/Resolving]
